FAERS Safety Report 20358120 (Version 1)
Quarter: 2022Q1

REPORT INFORMATION
  Report Type: Spontaneous
  Country: US (occurrence: US)
  Receive Date: 20220120
  Receipt Date: 20220120
  Transmission Date: 20220423
  Serious: No
  Sender: FDA-Public Use
  Company Number: US-SUNOVION-2022SUN000076

PATIENT
  Sex: Female

DRUGS (2)
  1. LUNESTA [Suspect]
     Active Substance: ESZOPICLONE
     Indication: Insomnia
     Dosage: 1.5 MG (CUTS 3 MG TABLET IN HALF)
     Route: 048
     Dates: start: 2018
  2. LUNESTA [Suspect]
     Active Substance: ESZOPICLONE
     Dosage: 0.75 MG  (CUTS THE TABLET IN QUARTERS)
     Route: 048
     Dates: start: 2018

REACTIONS (8)
  - Feeling abnormal [Not Recovered/Not Resolved]
  - Drug eruption [Not Recovered/Not Resolved]
  - Abdominal discomfort [Not Recovered/Not Resolved]
  - Insomnia [Not Recovered/Not Resolved]
  - Rash [Not Recovered/Not Resolved]
  - Memory impairment [Not Recovered/Not Resolved]
  - Underdose [Unknown]
  - Inappropriate schedule of product administration [Unknown]
